FAERS Safety Report 7717049-3 (Version None)
Quarter: 2011Q3

REPORT INFORMATION
  Report Type: 
  Country: None (occurrence: None)
  Receive Date: 20110830
  Receipt Date: 20110824
  Transmission Date: 20111222
  Serious: Yes (Hospitalization)
  Sender: FDA-Public Use
  Company Number: AU-BRISTOL-MYERS SQUIBB COMPANY-15995004

PATIENT
  Age: 72 Year
  Sex: Male
  Weight: 82 kg

DRUGS (1)
  1. IPILIMUMAB [Suspect]
     Indication: METASTATIC MALIGNANT MELANOMA
     Dosage: LAST DOSE:18APR11.
     Dates: start: 20110211, end: 20110418

REACTIONS (12)
  - HYPOTENSION [None]
  - RENAL IMPAIRMENT [None]
  - SECONDARY HYPOTHYROIDISM [None]
  - PSYCHOTIC DISORDER [None]
  - BACK PAIN [None]
  - BALANCE DISORDER [None]
  - ADRENAL INSUFFICIENCY [None]
  - GROWTH HORMONE DEFICIENCY [None]
  - DEHYDRATION [None]
  - HYPOPITUITARISM [None]
  - HYPOPHYSITIS [None]
  - LETHARGY [None]
